FAERS Safety Report 8203447-0 (Version None)
Quarter: 2012Q1

REPORT INFORMATION
  Report Type: 
  Country: None (occurrence: None)
  Receive Date: 20120313
  Receipt Date: 20120301
  Transmission Date: 20120608
  Serious: Yes (Hospitalization)
  Sender: FDA-Public Use
  Company Number: GB-AMGEN-GBRSP2012014404

PATIENT
  Age: 48 Year
  Sex: Male

DRUGS (4)
  1. ACETAMINOPHEN AND CODEINE PHOSPHATE [Concomitant]
     Dosage: UNK UNK, UNK
  2. MELOXICAM [Concomitant]
     Dosage: UNK UNK, UNK
  3. COD-LIVER OIL [Concomitant]
     Dosage: UNK UNK, UNK
  4. ETANERCEPT [Suspect]
     Indication: ANKYLOSING SPONDYLITIS
     Dosage: 50 MG, WEEKLY
     Route: 058
     Dates: start: 20101201, end: 20120220

REACTIONS (2)
  - HYDRONEPHROSIS [None]
  - PERIDIVERTICULAR ABSCESS [None]
